FAERS Safety Report 13523394 (Version 1)
Quarter: 2017Q2

REPORT INFORMATION
  Report Type: Report from Study
  Country: US (occurrence: US)
  Receive Date: 20170508
  Receipt Date: 20170508
  Transmission Date: 20170830
  Serious: Yes (Life-Threatening, Hospitalization)
  Sender: FDA-Public Use
  Company Number: US-CELGENEUS-USA-20170501448

PATIENT
  Age: 71 Year
  Sex: Male
  Weight: 76.2 kg

DRUGS (7)
  1. CISPLATIN. [Suspect]
     Active Substance: CISPLATIN
     Indication: CHOLANGIOCARCINOMA
     Route: 065
     Dates: start: 20160714
  2. GEMCITABINE [Suspect]
     Active Substance: GEMCITABINE\GEMCITABINE HYDROCHLORIDE
     Dosage: 600 MILLIGRAM/SQ. METER
     Route: 065
     Dates: start: 20170403, end: 20170417
  3. ERTAPENEM [Concomitant]
     Active Substance: ERTAPENEM
     Indication: GASTROENTERITIS NOROVIRUS
     Dosage: 1000 MILLIGRAM
     Route: 041
     Dates: start: 20170428, end: 20170501
  4. GEMCITABINE [Suspect]
     Active Substance: GEMCITABINE\GEMCITABINE HYDROCHLORIDE
     Indication: CHOLANGIOCARCINOMA
     Dosage: 600 MILLIGRAM/SQ. METER
     Route: 065
     Dates: start: 20160714
  5. ABRAXANE [Suspect]
     Active Substance: PACLITAXEL
     Indication: CHOLANGIOCARCINOMA
     Dosage: 75 MILLIGRAM/SQ. METER
     Route: 041
     Dates: start: 20160714
  6. ABRAXANE [Suspect]
     Active Substance: PACLITAXEL
     Dosage: 75 MILLIGRAM/SQ. METER
     Route: 041
     Dates: start: 20170403, end: 20170417
  7. POTASSIUM CHLORIDE. [Concomitant]
     Active Substance: POTASSIUM CHLORIDE
     Indication: HYPERKALAEMIA
     Dosage: 80 MILLIEQUIVALENTS
     Route: 048
     Dates: start: 20170430

REACTIONS (7)
  - Fatigue [Recovered/Resolved]
  - Diarrhoea [Recovered/Resolved]
  - Weight decreased [Recovered/Resolved]
  - Anaemia [Recovered/Resolved]
  - Decreased appetite [Recovered/Resolved]
  - Biliary tract infection [Recovered/Resolved]
  - Dehydration [Recovered/Resolved]

NARRATIVE: CASE EVENT DATE: 2017
